FAERS Safety Report 5847584-4 (Version None)
Quarter: 2008Q3

REPORT INFORMATION
  Report Type: 
  Country: None (occurrence: None)
  Receive Date: 20080818
  Receipt Date: 20080424
  Transmission Date: 20090109
  Serious: No
  Sender: FDA-Public Use
  Company Number: DE-BAYER-200814641GPV

PATIENT
  Age: 75 Year
  Sex: Male
  Weight: 104 kg

DRUGS (8)
  1. AVELOX [Suspect]
     Indication: SEPSIS
     Dosage: TOTAL DAILY DOSE: 400 MG  UNIT DOSE: 400 MG
     Route: 042
     Dates: start: 20080112, end: 20080121
  2. MARCUMAR [Concomitant]
     Indication: DRUG USE FOR UNKNOWN INDICATION
     Route: 065
  3. CORTISON [Concomitant]
     Indication: DRUG USE FOR UNKNOWN INDICATION
     Route: 065
  4. CATECHOLAMINE NOS [Concomitant]
     Indication: DRUG USE FOR UNKNOWN INDICATION
     Route: 065
  5. CEFUROXIME [Concomitant]
     Indication: SEPSIS
     Route: 065
     Dates: end: 20080221
  6. FOSFOMYCIN [Concomitant]
     Indication: SEPSIS
     Route: 065
     Dates: end: 20080221
  7. FENOFIBRATE [Concomitant]
     Indication: DRUG USE FOR UNKNOWN INDICATION
     Route: 065
     Dates: start: 20031222
  8. DIGITOXIN INJ [Concomitant]
     Indication: DRUG USE FOR UNKNOWN INDICATION
     Route: 065

REACTIONS (7)
  - ALANINE AMINOTRANSFERASE INCREASED [None]
  - ASCITES [None]
  - ASPARTATE AMINOTRANSFERASE INCREASED [None]
  - BLOOD BILIRUBIN INCREASED [None]
  - COAGULOPATHY [None]
  - HEPATITIS FULMINANT [None]
  - HEPATORENAL SYNDROME [None]
